FAERS Safety Report 14334855 (Version 6)
Quarter: 2018Q3

REPORT INFORMATION
  Report Type: Spontaneous
  Country: JP (occurrence: JP)
  Receive Date: 20171229
  Receipt Date: 20180709
  Transmission Date: 20181010
  Serious: Yes (Hospitalization, Other)
  Sender: FDA-Public Use
  Company Number: JP-BRISTOL-MYERS SQUIBB COMPANY-BMS-2017-115991

PATIENT
  Age: 68 Year
  Sex: Male

DRUGS (3)
  1. RAMUCIRUMAB [Suspect]
     Active Substance: RAMUCIRUMAB
     Indication: NON-SMALL CELL LUNG CANCER
     Route: 065
  2. DOCETAXEL. [Suspect]
     Active Substance: DOCETAXEL
     Indication: NON-SMALL CELL LUNG CANCER
     Route: 065
  3. OPDIVO [Suspect]
     Active Substance: NIVOLUMAB
     Indication: NON-SMALL CELL LUNG CANCER
     Dosage: 160 MG, UNK
     Route: 041
     Dates: start: 20160722, end: 20170816

REACTIONS (7)
  - Anaphylactic reaction [Recovering/Resolving]
  - Malignant neoplasm progression [Unknown]
  - Prescribed underdose [Unknown]
  - Dermatitis acneiform [Recovering/Resolving]
  - Type 2 diabetes mellitus [Recovering/Resolving]
  - Eczema [Recovering/Resolving]
  - Prescribed overdose [Unknown]

NARRATIVE: CASE EVENT DATE: 20160722
